FAERS Safety Report 23885418 (Version 1)
Quarter: 2024Q2

REPORT INFORMATION
  Report Type: Spontaneous
  Country: CN (occurrence: CN)
  Receive Date: 20240522
  Receipt Date: 20240522
  Transmission Date: 20240716
  Serious: Yes (Hospitalization, Other)
  Sender: FDA-Public Use
  Company Number: None

PATIENT
  Age: 8 Year
  Sex: Female
  Weight: 21 kg

DRUGS (9)
  1. IFOSFAMIDE [Suspect]
     Active Substance: IFOSFAMIDE
     Indication: Nephroblastoma
     Dosage: 1.53 G, ONE TIME IN ONE DAY, DILUTED WITH SODIUM CHLORIDE 250 ML
     Route: 041
     Dates: start: 20240505, end: 20240510
  2. IFOSFAMIDE [Suspect]
     Active Substance: IFOSFAMIDE
     Indication: Disease recurrence
  3. SODIUM CHLORIDE [Suspect]
     Active Substance: SODIUM CHLORIDE
     Indication: Medication dilution
     Dosage: 250 ML,ONE TIME IN ONE DAY, USED TO DILUTE IFOSFAMIDE 1.53 G
     Route: 041
     Dates: start: 20240505, end: 20240510
  4. SODIUM CHLORIDE [Suspect]
     Active Substance: SODIUM CHLORIDE
     Dosage: 250 ML, ONE TIME IN ONE DAY, USED TO DILUTE ETOPOSIDE 85 MG
     Route: 041
     Dates: start: 20240505, end: 20240510
  5. SODIUM CHLORIDE [Suspect]
     Active Substance: SODIUM CHLORIDE
     Dosage: 20 ML, ONE TIME IN ONE DAY, USED TO DILUTE VINDESINE SULFATE 2.55 MG
     Route: 041
     Dates: start: 20240505, end: 20240506
  6. ETOPOSIDE [Suspect]
     Active Substance: ETOPOSIDE
     Indication: Nephroblastoma
     Dosage: 85 MG, ONE TIME IN ONE DAY, DILUTED WITH SODIUM CHLORIDE 250 ML
     Route: 041
     Dates: start: 20240505, end: 20240510
  7. ETOPOSIDE [Suspect]
     Active Substance: ETOPOSIDE
     Indication: Disease recurrence
  8. VINDESINE SULFATE [Suspect]
     Active Substance: VINDESINE SULFATE
     Indication: Nephroblastoma
     Dosage: 2.55 MG, ONE TIME IN ONE DAY, DILUTED WITH SODIUM CHLORIDE 20 ML
     Route: 041
     Dates: start: 20240505, end: 20240506
  9. VINDESINE SULFATE [Suspect]
     Active Substance: VINDESINE SULFATE
     Indication: Disease recurrence

REACTIONS (1)
  - Myelosuppression [Recovering/Resolving]

NARRATIVE: CASE EVENT DATE: 20240511
